FAERS Safety Report 19180516 (Version 2)
Quarter: 2021Q2

REPORT INFORMATION
  Report Type: Spontaneous
  Country: NL (occurrence: NL)
  Receive Date: 20210426
  Receipt Date: 20210524
  Transmission Date: 20210717
  Serious: Yes (Death)
  Sender: FDA-Public Use
  Company Number: NL-TEVA-2021-NL-1904833

PATIENT
  Age: 87 Year
  Sex: Female
  Weight: 63 kg

DRUGS (4)
  1. PARACETAMOL TABLET 1000MG / BRAND NAME NOT SPECIFIED [Concomitant]
     Dosage: 1000 MG, THERAPY START AND END DATE: ASKU:3X 2 PER DAY
  2. ACENOCOUMAROL TABLET 1MG / BRAND NAME NOT SPECIFIED [Suspect]
     Active Substance: ACENOCOUMAROL
     Indication: ARRHYTHMIA
     Dosage: 1 OR 2 A DAY, 1 DF, THERAPY END DATE: ASKU
     Route: 065
     Dates: start: 200001
  3. MACROGOL/ZOUTEN DRANK ? NON?CURRENT DRUG / BRAND NAME NOT SPECIFIED [Concomitant]
     Dosage: ONCE A MONTH:THERAPY START DATE :THERAPY END DATE :ASKU
  4. VERAPAMIL [Suspect]
     Active Substance: VERAPAMIL HYDROCHLORIDE
     Indication: ARRHYTHMIA
     Dosage: 120 MILLIGRAM DAILY; THERAPY END DATE: ASKU
     Route: 065
     Dates: start: 200001

REACTIONS (3)
  - Epistaxis [Recovered/Resolved]
  - Cardiac arrest [Fatal]
  - Epistaxis [Recovered/Resolved]

NARRATIVE: CASE EVENT DATE: 20210321
